FAERS Safety Report 5553959-3 (Version None)
Quarter: 2007Q4

REPORT INFORMATION
  Report Type: 
  Country: None (occurrence: None)
  Receive Date: 20071213
  Receipt Date: 20071130
  Transmission Date: 20080405
  Serious: No
  Sender: FDA-Public Use
  Company Number: FR-ELI_LILLY_AND_COMPANY-FR200711002117

PATIENT
  Age: 85 Year
  Sex: Female
  Weight: 75 kg

DRUGS (1)
  1. FORTEO [Suspect]
     Indication: OSTEOPOROSIS
     Dosage: 20 UG, DAILY (1/D)
     Route: 058
     Dates: start: 20060601

REACTIONS (2)
  - BACK PAIN [None]
  - X-RAY OF PELVIS AND HIP ABNORMAL [None]
